FAERS Safety Report 9918754 (Version 2)
Quarter: 2014Q2

REPORT INFORMATION
  Report Type: Report from Study
  Country: JP (occurrence: JP)
  Receive Date: 20140224
  Receipt Date: 20140506
  Transmission Date: 20141212
  Serious: Yes (Other)
  Sender: FDA-Public Use
  Company Number: JP-009507513-1402JPN010389

PATIENT
  Age: 14 Year
  Sex: Male

DRUGS (65)
  1. EMEND [Suspect]
     Indication: PROPHYLAXIS OF NAUSEA AND VOMITING
     Dosage: 125 MG, QD
     Route: 048
     Dates: start: 20130708, end: 20130708
  2. EMEND [Suspect]
     Dosage: 80 MG, QD
     Route: 048
     Dates: start: 20130709, end: 20130710
  3. EMEND [Suspect]
     Dosage: 125 MG, QD
     Route: 048
     Dates: start: 20130731, end: 20130731
  4. EMEND [Suspect]
     Dosage: 80 MG, QD
     Route: 048
     Dates: start: 20130801, end: 20130802
  5. EMEND [Suspect]
     Dosage: 125 MG, QD
     Route: 048
     Dates: start: 20130821, end: 20130821
  6. EMEND [Suspect]
     Dosage: 80 MG, QD
     Route: 048
     Dates: start: 20130822, end: 20130823
  7. EMEND [Suspect]
     Dosage: 125 MG, QD
     Route: 048
     Dates: start: 20130912, end: 20130912
  8. EMEND [Suspect]
     Dosage: 80 MG, QD
     Route: 048
     Dates: start: 20130913, end: 20130914
  9. EMEND [Suspect]
     Dosage: 125 MG, QD
     Route: 048
     Dates: start: 20131009, end: 20131009
  10. EMEND [Suspect]
     Dosage: 80 MG, QD
     Route: 048
     Dates: start: 20131010, end: 20131011
  11. EMEND [Suspect]
     Dosage: 125 MG, QD
     Route: 048
     Dates: start: 20131113, end: 20131113
  12. EMEND [Suspect]
     Dosage: 80 MG, QD
     Route: 048
     Dates: start: 20131114, end: 20131115
  13. EMEND [Suspect]
     Dosage: 125 MG, QD
     Route: 048
     Dates: start: 20131204, end: 20131204
  14. EMEND [Suspect]
     Dosage: 80 MG, QD
     Route: 048
     Dates: start: 20131205, end: 20131206
  15. EMEND [Suspect]
     Dosage: 125 MG, QD
     Route: 048
     Dates: start: 20131225, end: 20131225
  16. EMEND [Suspect]
     Dosage: 80 MG, QD
     Route: 048
     Dates: start: 20131226, end: 20131227
  17. EMEND [Suspect]
     Dosage: UNK
  18. ENDOXAN [Suspect]
     Indication: LYMPHOMA
     Dosage: 690 MG, QD
     Route: 041
     Dates: start: 20130708, end: 20130708
  19. ENDOXAN [Suspect]
     Dosage: 690 MG, QD
     Route: 041
     Dates: start: 20130731, end: 20130731
  20. ENDOXAN [Suspect]
     Dosage: 690 MG, QD
     Route: 041
     Dates: start: 20131009, end: 20131009
  21. ENDOXAN [Suspect]
     Dosage: 690 MG, QD
     Route: 041
     Dates: start: 20131113, end: 20131113
  22. ENDOXAN [Suspect]
     Dosage: UNK
  23. ONCOVIN [Suspect]
     Indication: LYMPHOMA
     Dosage: 2 MG, QD
     Route: 041
     Dates: start: 20130708, end: 20130708
  24. ONCOVIN [Suspect]
     Dosage: 2 MG, QD
     Route: 041
     Dates: start: 20130731, end: 20130731
  25. ONCOVIN [Suspect]
     Dosage: 2 MG, QD
     Route: 041
     Dates: start: 20130821, end: 20130821
  26. ONCOVIN [Suspect]
     Dosage: 2 MG, QD
     Route: 041
     Dates: start: 20131009, end: 20131009
  27. ONCOVIN [Suspect]
     Dosage: 2 MG, QD
     Route: 041
     Dates: start: 20131113, end: 20131113
  28. ONCOVIN [Suspect]
     Dosage: 2 MG, QD
     Route: 041
     Dates: start: 20131204, end: 20131204
  29. LEUNASE [Suspect]
     Indication: LYMPHOMA
     Dosage: 8300 UNITS, QD
     Route: 041
     Dates: start: 20130708, end: 20130708
  30. LEUNASE [Suspect]
     Dosage: 8300 UNITS, QD
     Route: 041
     Dates: start: 20130731, end: 20130731
  31. LEUNASE [Suspect]
     Dosage: 8300 UNITS, QD
     Route: 041
     Dates: start: 20130913, end: 20130913
  32. LEUNASE [Suspect]
     Dosage: 8300 IU, QD
     Route: 041
     Dates: start: 20130821, end: 20130821
  33. LEUNASE [Suspect]
     Dosage: 8300 IU, QD
     Route: 041
     Dates: start: 20131009, end: 20131009
  34. LEUNASE [Suspect]
     Dosage: 8300 IU, QD
     Route: 041
     Dates: start: 20131113, end: 20131113
  35. LEUNASE [Suspect]
     Dosage: 8300 IU, QD
     Route: 041
     Dates: start: 20131204, end: 20131204
  36. METHOTREXATE [Suspect]
     Indication: LYMPHOMA
     Dosage: 690 MG, QD
     Route: 041
     Dates: start: 20130912, end: 20130912
  37. METHOTREXATE [Suspect]
     Dosage: 210 MG, QD
     Route: 041
     Dates: start: 20131225, end: 20131225
  38. THERARUBICIN [Concomitant]
     Dosage: UNK
     Dates: start: 20130821, end: 20130821
  39. THERARUBICIN [Concomitant]
     Dosage: UNK
     Dates: start: 20131204, end: 20131204
  40. LEUKERIN [Concomitant]
     Dosage: 41 MG, UNK
     Dates: start: 20130708, end: 20130910
  41. LEUKERIN [Concomitant]
     Dosage: 10 MG, UNK
     Dates: start: 20130708, end: 20130910
  42. LEUKERIN [Concomitant]
     Dosage: 10 MG, UNK
     Dates: start: 20131009, end: 20131210
  43. LEUKERIN [Concomitant]
     Dosage: 5 MG, UNK
     Dates: start: 20131225, end: 20140107
  44. DEXART [Concomitant]
     Dosage: UNK
     Dates: start: 20130708, end: 20130708
  45. DEXART [Concomitant]
     Dosage: UNK
     Dates: start: 20130912, end: 20130913
  46. KYTRIL [Concomitant]
     Dosage: UNK
     Dates: start: 20130708, end: 20130709
  47. KYTRIL [Concomitant]
     Dosage: UNK
     Dates: start: 20130731, end: 20130801
  48. KYTRIL [Concomitant]
     Dosage: UNK
     Dates: start: 20130821, end: 20130822
  49. KYTRIL [Concomitant]
     Dosage: UNK
     Dates: start: 20130912, end: 20130913
  50. KYTRIL [Concomitant]
     Dosage: UNK
     Dates: start: 20131009, end: 20131009
  51. KYTRIL [Concomitant]
     Dosage: UNK
     Dates: start: 20131113, end: 20131114
  52. KYTRIL [Concomitant]
     Dosage: UNK
     Dates: start: 20131204, end: 20131205
  53. KYTRIL [Concomitant]
     Dosage: UNK
  54. GRANISETRON [Concomitant]
     Dosage: UNK
     Dates: start: 20131225, end: 20131226
  55. PREDONINE [Concomitant]
     Dosage: UNK
     Dates: start: 20130708, end: 20130712
  56. PREDONINE [Concomitant]
     Dosage: UNK
     Dates: start: 20130731, end: 20130804
  57. PREDONINE [Concomitant]
     Dosage: UNK
     Dates: start: 20130821, end: 20130825
  58. PREDONINE [Concomitant]
     Dosage: UNK
     Dates: start: 20131009, end: 20131013
  59. PREDONINE [Concomitant]
     Dosage: UNK
     Dates: start: 20131113, end: 20131117
  60. PREDONINE [Concomitant]
     Dosage: UNK
     Dates: start: 20131204, end: 20131208
  61. FLUCONAZOLE [Concomitant]
     Dosage: UNK
  62. BACTRAMIN [Concomitant]
     Dosage: UNK
  63. ISODINE [Concomitant]
     Dosage: UNK
  64. SOLU-CORTEF [Concomitant]
     Dosage: UNK
     Dates: start: 20130913, end: 20130913
  65. DIAMOX [Concomitant]
     Dosage: UNK
     Dates: start: 20130911, end: 20130914

REACTIONS (3)
  - White blood cell count decreased [Recovered/Resolved]
  - Neutrophil count decreased [Recovered/Resolved]
  - Anaemia [Recovered/Resolved]
